FAERS Safety Report 16601451 (Version 3)
Quarter: 2020Q1

REPORT INFORMATION
  Report Type: Spontaneous
  Country: US (occurrence: US)
  Receive Date: 20190719
  Receipt Date: 20200131
  Transmission Date: 20200409
  Serious: No
  Sender: FDA-Public Use
  Company Number: US-TEVA-2019-US-1079087

PATIENT
  Sex: Male
  Weight: 77.11 kg

DRUGS (1)
  1. SILDENAFIL. [Suspect]
     Active Substance: SILDENAFIL
     Dosage: AS NEEDED
     Route: 048

REACTIONS (3)
  - Therapeutic product effect decreased [Unknown]
  - Product substitution issue [Unknown]
  - Wrong technique in product usage process [Unknown]
